FAERS Safety Report 16576795 (Version 1)
Quarter: 2019Q3

REPORT INFORMATION
  Report Type: Spontaneous
  Country: FR (occurrence: FR)
  Receive Date: 20190716
  Receipt Date: 20190716
  Transmission Date: 20191004
  Serious: Yes (Other)
  Sender: FDA-Public Use
  Company Number: FR-SA-2019SA178919

PATIENT
  Sex: Female

DRUGS (13)
  1. PREDNISONE. [Concomitant]
     Active Substance: PREDNISONE
     Indication: SARCOIDOSIS
     Dosage: 1 MG/KG, QD
     Route: 048
  2. PREDNISONE. [Concomitant]
     Active Substance: PREDNISONE
     Dosage: MORE THAN 20 MG/D
  3. ADALIMUMAB [Concomitant]
     Active Substance: ADALIMUMAB
     Indication: SARCOIDOSIS
     Dosage: UNK
     Dates: start: 200906
  4. LEFLUNOMIDE. [Suspect]
     Active Substance: LEFLUNOMIDE
     Indication: SARCOIDOSIS
  5. PREDNISONE. [Concomitant]
     Active Substance: PREDNISONE
     Dosage: GRADUALLY INCREASED OVER TIME FROM 2006 TO 2016, FROM 8MG/D OF PREDNISONE TO MORE THAN 20 MG/D
     Dates: start: 2006
  6. RUXOLITINIB [Concomitant]
     Active Substance: RUXOLITINIB
     Indication: POLYCYTHAEMIA VERA
     Dosage: 5 MG, Q12H
     Route: 048
     Dates: start: 20170626
  7. PREDNISONE. [Concomitant]
     Active Substance: PREDNISONE
     Dosage: GRADUALLY INCREASED OVER TIME FROM 2006 TO 2016, FROM 8MG/D OF PREDNISONE TO MORE THAN 20 MG/D
  8. INFLIXIMAB [Concomitant]
     Active Substance: INFLIXIMAB
     Indication: SARCOIDOSIS
     Dosage: UNK
     Dates: start: 201201
  9. AZATHIOPRINE. [Concomitant]
     Active Substance: AZATHIOPRINE
     Indication: SARCOIDOSIS
     Dosage: UNK
     Dates: start: 200502
  10. PREDNISONE. [Concomitant]
     Active Substance: PREDNISONE
     Dosage: DOSE TAPERED AND THEN STOPPED
  11. METHOTREXATE. [Suspect]
     Active Substance: METHOTREXATE
     Indication: SARCOIDOSIS
     Dates: start: 200303
  12. HYDROXYCHLOROQUINE SULFATE. [Suspect]
     Active Substance: HYDROXYCHLOROQUINE SULFATE
     Indication: SARCOIDOSIS
     Dosage: UNK
     Dates: start: 2000, end: 2002
  13. HYDROXYUREA. [Concomitant]
     Active Substance: HYDROXYUREA
     Indication: POLYCYTHAEMIA VERA

REACTIONS (5)
  - Off label use [Unknown]
  - Nausea [Unknown]
  - Hepatic function abnormal [Unknown]
  - Vomiting [Unknown]
  - Drug intolerance [Unknown]
